FAERS Safety Report 10100667 (Version 1)
Quarter: 2014Q2

REPORT INFORMATION
  Report Type: Spontaneous
  Country: TR (occurrence: TR)
  Receive Date: 20140423
  Receipt Date: 20140423
  Transmission Date: 20141212
  Serious: Yes (Other)
  Sender: FDA-Public Use
  Company Number: PHHY2014TR045850

PATIENT
  Age: 26 Year
  Sex: Female

DRUGS (7)
  1. VINCRISTINE [Suspect]
     Dosage: 1.5 MG, ONCE/SINGLE
  2. METHYLPREDNISOLONE [Interacting]
     Dosage: 16 MG, PER DAY
  3. IMMUNOGLOBULIN I.V [Interacting]
     Dosage: 0.4 MG/KG, PER DAY
  4. ORAL CONTRACEPTIVE NOS [Interacting]
     Indication: MENORRHAGIA
  5. ELTROMBOPAG [Interacting]
     Dosage: 50 MG, PER DAY
  6. ELTROMBOPAG [Interacting]
     Dosage: 75 MG, PER DAY
  7. DANAZOL [Interacting]
     Dosage: 600 MG, PER DAY

REACTIONS (4)
  - Pulmonary artery thrombosis [Unknown]
  - Dyspnoea [Unknown]
  - Intracardiac thrombus [Unknown]
  - Drug interaction [Unknown]
